FAERS Safety Report 7890126-2 (Version None)
Quarter: 2011Q4

REPORT INFORMATION
  Report Type: 
  Country: None (occurrence: None)
  Receive Date: 20111103
  Receipt Date: 20111019
  Transmission Date: 20120403
  Serious: Yes (Other)
  Sender: FDA-Public Use
  Company Number: US-WATSON-2011-16944

PATIENT
  Sex: Male
  Weight: 83.9 kg

DRUGS (16)
  1. FENTANYL-75 [Suspect]
     Indication: BACK DISORDER
  2. PROTONIX [Concomitant]
     Indication: GASTROOESOPHAGEAL REFLUX DISEASE
     Dosage: 1 TABLET DAILY
     Route: 048
  3. FENTANYL-100 [Suspect]
     Indication: BACK DISORDER
  4. DEPAKOTE [Concomitant]
     Indication: ANXIETY
     Dosage: 1 TABLET, QHS
     Route: 048
  5. FENTANYL-100 [Suspect]
     Indication: RHEUMATOID ARTHRITIS
     Dosage: USED ONE PATCH ONLY
     Route: 062
     Dates: start: 20111014, end: 20111014
  6. FENTANYL-75 [Suspect]
     Indication: RHEUMATOID ARTHRITIS
     Dosage: USED 1 PATCH ONLY
     Route: 062
     Dates: start: 20060101, end: 20060101
  7. POTASSIUM [Concomitant]
     Indication: PRODUCT USED FOR UNKNOWN INDICATION
     Dosage: DAILY
     Route: 048
  8. REMERON [Concomitant]
     Indication: AFFECTIVE DISORDER
     Dosage: 1 TABLET, QHS
     Route: 048
  9. ALLOPURINOL [Concomitant]
     Indication: BLOOD URIC ACID
     Dosage: 1 TABLET DAILY
     Route: 048
  10. CARAFATE [Concomitant]
     Indication: PRODUCT USED FOR UNKNOWN INDICATION
     Dosage: 1 TABLET 4 TIMES PER DAY
     Route: 048
  11. COREG [Concomitant]
     Indication: HYPERTENSION
     Dosage: 1 TABLET TWICE DAILY
     Route: 048
  12. ALPRAZOLAM [Concomitant]
     Indication: PRODUCT USED FOR UNKNOWN INDICATION
     Dosage: 1 TABLET TID
     Route: 048
  13. FENTANYL-25 [Suspect]
     Indication: RHEUMATOID ARTHRITIS
     Dosage: USED 1 PATCH ONLY
     Route: 062
     Dates: start: 20060101, end: 20060101
  14. FENTANYL-25 [Suspect]
     Indication: BACK DISORDER
  15. LISINOPRIL [Concomitant]
     Indication: HYPERTENSION
     Dosage: 1 TABLET DAILY
     Route: 048
  16. SOMA [Concomitant]
     Indication: MUSCLE SPASMS
     Dosage: ONE TABLET DAILY
     Route: 048

REACTIONS (16)
  - DIZZINESS [None]
  - SYNCOPE [None]
  - PANIC REACTION [None]
  - RETCHING [None]
  - VOMITING [None]
  - ACCIDENTAL OVERDOSE [None]
  - CONFUSIONAL STATE [None]
  - FEELING DRUNK [None]
  - MALAISE [None]
  - APPLICATION SITE PRURITUS [None]
  - ANXIETY [None]
  - NERVOUSNESS [None]
  - DISORIENTATION [None]
  - HYPERHIDROSIS [None]
  - PRURITUS GENERALISED [None]
  - NAUSEA [None]
